FAERS Safety Report 6208505-8 (Version None)
Quarter: 2009Q2

REPORT INFORMATION
  Report Type: 
  Country: None (occurrence: None)
  Receive Date: 20090529
  Receipt Date: 20090520
  Transmission Date: 20091009
  Serious: Yes (Death)
  Sender: FDA-Public Use
  Company Number: IE-MEDIMMUNE-MEDI-0008401

PATIENT
  Sex: Male
  Weight: 4 kg

DRUGS (2)
  1. SYNAGIS [Suspect]
     Indication: ANTIVIRAL PROPHYLAXIS
     Route: 030
     Dates: start: 20081101, end: 20090301
  2. SYNAGIS [Suspect]
     Dates: start: 20081101

REACTIONS (1)
  - DEATH [None]
